FAERS Safety Report 9161585 (Version 1)
Quarter: 2012Q4

REPORT INFORMATION
  Report Type: 
  Country: FR (occurrence: FR)
  Receive Date: 20121221
  Receipt Date: 20121221
  Transmission Date: 20130627
  Serious: Yes (Congenital Anomaly, Other)
  Sender: FDA-Public Use
  Company Number: FR-RB-047868-12

PATIENT

DRUGS (3)
  1. BUPRENORPHINE [Suspect]
     Indication: DRUG DEPENDENCE
     Dosage: Stopped taking in 12th week of pregnancy
  2. CANNABIS [Suspect]
     Indication: PRODUCT USED FOR UNKNOWN INDICATION
     Dosage: Drug details unknown
     Route: 065
  3. ASPIRIN [Suspect]
     Route: 064

REACTIONS (5)
  - Foetal exposure during pregnancy [Recovered/Resolved]
  - Ductus arteriosus stenosis foetal [Unknown]
  - Pericardial effusion [Unknown]
  - Cardiac murmur [Unknown]
  - Drug withdrawal syndrome neonatal [Unknown]
